FAERS Safety Report 6950542-X (Version None)
Quarter: 2010Q3

REPORT INFORMATION
  Report Type: 
  Country: None (occurrence: None)
  Receive Date: 20100828
  Receipt Date: 20100216
  Transmission Date: 20110219
  Serious: No
  Sender: FDA-Public Use
  Company Number: US-ABBOTT-10P-163-0626799-00

PATIENT
  Sex: Male
  Weight: 74.91 kg

DRUGS (4)
  1. NIASPAN [Suspect]
     Indication: BLOOD CHOLESTEROL INCREASED
     Dosage: 2000MG AT BEDTIME
     Dates: start: 20100213
  2. ZETIA [Concomitant]
     Indication: BLOOD CHOLESTEROL INCREASED
     Dosage: DAILY
     Route: 048
  3. ASPIRIN [Concomitant]
     Indication: PRODUCT USED FOR UNKNOWN INDICATION
     Route: 048
  4. UNKNOWN SEIZURE MEDICATION [Concomitant]
     Indication: TEMPORAL LOBE EPILEPSY
     Dosage: 600MG DAILY

REACTIONS (2)
  - HEART RATE INCREASED [None]
  - PALPITATIONS [None]
